FAERS Safety Report 5406131-1 (Version None)
Quarter: 2007Q3

REPORT INFORMATION
  Report Type: 
  Country: None (occurrence: None)
  Receive Date: 20070802
  Receipt Date: 20070802
  Transmission Date: 20080115
  Serious: Yes (Other)
  Sender: FDA-Public Use
  Company Number: None

PATIENT
  Age: 59 Year
  Sex: Female
  Weight: 74.3899 kg

DRUGS (1)
  1. CEFZIL [Suspect]
     Indication: SINUSITIS
     Dosage: 250 MG 1 TAB TWICE DAILY PO
     Route: 048
     Dates: start: 20070713, end: 20070713

REACTIONS (5)
  - DEHYDRATION [None]
  - DIARRHOEA [None]
  - DIZZINESS [None]
  - FATIGUE [None]
  - VOMITING [None]
